FAERS Safety Report 6719719-2 (Version None)
Quarter: 2010Q2

REPORT INFORMATION
  Report Type: 
  Country: None (occurrence: None)
  Receive Date: 20100505
  Receipt Date: 20100129
  Transmission Date: 20101027
  Serious: Yes (Hospitalization)
  Sender: FDA-Public Use
  Company Number: 1000013521

PATIENT
  Age: 61 Year
  Sex: Female

DRUGS (4)
  1. ESCITALOPRAM [Suspect]
     Indication: DEPRESSION
     Dosage: 10 MG (10MG, 1 IN 1D), (20MG)
  2. CITALOPRAM HYDROBROMIDE [Suspect]
     Indication: DEPRESSION
  3. VENLAFAXINE [Suspect]
     Indication: DEPRESSION
  4. OMEPRAZOLE [Concomitant]

REACTIONS (18)
  - ALCOHOL USE [None]
  - APATHY [None]
  - ATAXIA [None]
  - BLOOD ALBUMIN DECREASED [None]
  - BLOOD SODIUM DECREASED [None]
  - BLOOD UREA DECREASED [None]
  - CONFUSIONAL STATE [None]
  - DEPRESSED MOOD [None]
  - DIARRHOEA [None]
  - DIZZINESS [None]
  - GAIT DISTURBANCE [None]
  - HAEMOGLOBIN DECREASED [None]
  - HYPOPHAGIA [None]
  - MALNUTRITION [None]
  - MYOCLONUS [None]
  - TACHYCARDIA [None]
  - TREMOR [None]
  - WITHDRAWAL SYNDROME [None]
